FAERS Safety Report 7404431-7 (Version None)
Quarter: 2011Q2

REPORT INFORMATION
  Report Type: 
  Country: None (occurrence: None)
  Receive Date: 20110408
  Receipt Date: 20110406
  Transmission Date: 20111010
  Serious: Yes (Death)
  Sender: FDA-Public Use
  Company Number: US-MERCK-1104USA00411

PATIENT
  Age: 85 Year
  Sex: Male

DRUGS (4)
  1. ALPHAGAN [Concomitant]
     Route: 065
  2. NAMENDA [Concomitant]
     Route: 065
  3. COSOPT [Suspect]
     Indication: GLAUCOMA
     Route: 047
  4. DETROL [Concomitant]
     Route: 065

REACTIONS (2)
  - HELICOBACTER INFECTION [None]
  - MYOCARDIAL INFARCTION [None]
